FAERS Safety Report 7542589-X (Version None)
Quarter: 2011Q2

REPORT INFORMATION
  Report Type: 
  Country: None (occurrence: None)
  Receive Date: 20110613
  Receipt Date: 20110601
  Transmission Date: 20111010
  Serious: Yes (Other)
  Sender: FDA-Public Use
  Company Number: JP-ROCHE-772399

PATIENT
  Sex: Female
  Weight: 43 kg

DRUGS (10)
  1. OXYCONTIN [Concomitant]
     Route: 048
     Dates: start: 20080101
  2. LANSOPRAZOLE [Concomitant]
     Route: 048
     Dates: start: 20080101
  3. PACLITAXEL [Suspect]
     Indication: BREAST CANCER METASTATIC
     Dosage: FREQUENCY: 1/
     Route: 041
     Dates: start: 20100210, end: 20101208
  4. AROMASIN [Concomitant]
     Route: 048
     Dates: start: 20110120
  5. ASTOMIN [Concomitant]
     Route: 048
     Dates: start: 20080101
  6. HERCEPTIN [Suspect]
     Route: 041
     Dates: start: 20090128, end: 20110202
  7. FEMARA [Concomitant]
     Route: 048
     Dates: start: 20100317, end: 20110119
  8. MICARDIS [Concomitant]
     Route: 048
     Dates: start: 20080101
  9. LASIX [Concomitant]
     Route: 048
     Dates: start: 20080101
  10. HERCEPTIN [Suspect]
     Indication: BREAST CANCER METASTATIC
     Route: 041
     Dates: start: 20090119, end: 20090119

REACTIONS (4)
  - INTERSTITIAL LUNG DISEASE [None]
  - METASTASES TO CENTRAL NERVOUS SYSTEM [None]
  - PRURITUS [None]
  - FATIGUE [None]
